FAERS Safety Report 6083660-1 (Version None)
Quarter: 2009Q1

REPORT INFORMATION
  Report Type: 
  Country: None (occurrence: None)
  Receive Date: 20090219
  Receipt Date: 20090211
  Transmission Date: 20090719
  Serious: Yes (Hospitalization)
  Sender: FDA-Public Use
  Company Number: DE-AMGEN-UK284601

PATIENT
  Sex: Male

DRUGS (5)
  1. PANITUMUMAB [Suspect]
     Indication: SQUAMOUS CELL CARCINOMA
     Route: 042
     Dates: start: 20080401, end: 20080619
  2. FLUOROURACIL [Suspect]
     Indication: CHEMOTHERAPY
     Route: 042
     Dates: start: 20080401, end: 20080524
  3. CISPLATIN [Suspect]
     Indication: CHEMOTHERAPY
     Route: 042
     Dates: start: 20080401, end: 20080520
  4. AMARYL [Concomitant]
     Route: 048
  5. METOPROLOL TARTRATE [Concomitant]
     Route: 048
     Dates: start: 20081001

REACTIONS (3)
  - BLOOD CREATININE INCREASED [None]
  - RENAL FAILURE [None]
  - URINARY RETENTION [None]
